FAERS Safety Report 18735382 (Version 2)
Quarter: 2021Q1

REPORT INFORMATION
  Report Type: Spontaneous
  Country: DE (occurrence: DE)
  Receive Date: 20210113
  Receipt Date: 20210121
  Transmission Date: 20210419
  Serious: Yes (Other)
  Sender: FDA-Public Use
  Company Number: NVSC2021DE004975

PATIENT
  Age: 59 Year
  Sex: Female
  Weight: 72 kg

DRUGS (2)
  1. AMOXI 1000 ? 1 A PHARMA [Suspect]
     Active Substance: AMOXICILLIN
     Indication: NONINFECTIVE GINGIVITIS
     Dosage: 1000 MG, TOTAL (3 X 1000 MG)
     Route: 048
     Dates: start: 20210105, end: 20210105
  2. CANDESARTAN. [Concomitant]
     Active Substance: CANDESARTAN
     Indication: HYPERTENSION
     Dosage: 16 MG, QD (1?0?0DURCHGEHENDE EINNAHME SEIT 32 JAHREN)
     Route: 048
     Dates: start: 1989

REACTIONS (11)
  - Fall [Recovering/Resolving]
  - Abdominal pain upper [Recovered/Resolved]
  - Cold sweat [Recovering/Resolving]
  - Abdominal discomfort [Recovered/Resolved]
  - Feeling cold [Recovered/Resolved]
  - Heart rate increased [Recovering/Resolving]
  - Nausea [Recovering/Resolving]
  - Dizziness [Recovering/Resolving]
  - Tremor [Recovered/Resolved]
  - Loss of consciousness [Recovering/Resolving]
  - Asthenia [Recovered/Resolved]

NARRATIVE: CASE EVENT DATE: 202101
